FAERS Safety Report 10333241 (Version 1)
Quarter: 2014Q3

REPORT INFORMATION
  Report Type: Spontaneous
  Country: IN (occurrence: IN)
  Receive Date: 20140722
  Receipt Date: 20140722
  Transmission Date: 20150326
  Serious: Yes (Other)
  Sender: FDA-Public Use
  Company Number: IN-BAXTER-2014BAX040723

PATIENT

DRUGS (2)
  1. SYNTOCINON [Suspect]
     Active Substance: OXYTOCIN
     Indication: FOETAL EXPOSURE TIMING UNSPECIFIED
     Route: 015
  2. DEXTROSE. [Suspect]
     Active Substance: DEXTROSE
     Indication: FOETAL EXPOSURE TIMING UNSPECIFIED
     Route: 015

REACTIONS (2)
  - Foetal exposure during pregnancy [Unknown]
  - Foetal heart rate decreased [Unknown]
